FAERS Safety Report 23272508 (Version 1)
Quarter: 2023Q4

REPORT INFORMATION
  Report Type: Other
  Country: MA (occurrence: None)
  Receive Date: 20231207
  Receipt Date: 20231207
  Transmission Date: 20240109
  Serious: Yes (Other)
  Sender: FDA-Public Use
  Company Number: MA-ROCHE-3469545

PATIENT

DRUGS (4)
  1. MYCOPHENOLATE MOFETIL [Suspect]
     Active Substance: MYCOPHENOLATE MOFETIL
     Indication: Systemic lupus erythematosus
     Route: 065
  2. AZATHIOPRINE [Suspect]
     Active Substance: AZATHIOPRINE
     Indication: Systemic lupus erythematosus
     Route: 065
  3. CYCLOPHOSPHAMIDE [Suspect]
     Active Substance: CYCLOPHOSPHAMIDE
     Indication: Systemic lupus erythematosus
     Route: 065
  4. HEPARIN [Suspect]
     Active Substance: HEPARIN SODIUM
     Indication: Systemic lupus erythematosus
     Route: 065

REACTIONS (8)
  - HELLP syndrome [Unknown]
  - Renal failure [Unknown]
  - Abortion spontaneous [Unknown]
  - Pre-eclampsia [Unknown]
  - Eclampsia [Unknown]
  - Nephritis [Unknown]
  - Premature delivery [Unknown]
  - Maternal exposure during pregnancy [Unknown]
